FAERS Safety Report 5765871-5 (Version None)
Quarter: 2008Q2

REPORT INFORMATION
  Report Type: 
  Country: None (occurrence: None)
  Receive Date: 20080606
  Receipt Date: 20080606
  Transmission Date: 20081010
  Serious: Yes (Death)
  Sender: FDA-Public Use
  Company Number: 002#1#2008-00445

PATIENT
  Sex: Male

DRUGS (1)
  1. NEUPRO [Suspect]
     Indication: DRUG USE FOR UNKNOWN INDICATION
     Dosage: 6 MG/24H, 1 IN 1 D, TRANSDERMAL
     Route: 062

REACTIONS (2)
  - CARDIAC DISORDER [None]
  - RENAL FAILURE [None]
